FAERS Safety Report 5389347-2 (Version None)
Quarter: 2007Q3

REPORT INFORMATION
  Report Type: 
  Country: None (occurrence: None)
  Receive Date: 20070713
  Receipt Date: 20070713
  Transmission Date: 20080115
  Serious: Yes (Hospitalization)
  Sender: FDA-Public Use
  Company Number: None

PATIENT
  Sex: Female
  Weight: 136 kg

DRUGS (1)
  1. TAXOL [Suspect]
     Dosage: 335 MG

REACTIONS (7)
  - BALANCE DISORDER [None]
  - CEREBELLAR ATROPHY [None]
  - CEREBRAL ATROPHY [None]
  - FALL [None]
  - HEAD INJURY [None]
  - SKIN LACERATION [None]
  - VERTIGO [None]
